FAERS Safety Report 5583014-8 (Version None)
Quarter: 2008Q1

REPORT INFORMATION
  Report Type: 
  Country: None (occurrence: None)
  Receive Date: 20080107
  Receipt Date: 20080102
  Transmission Date: 20080703
  Serious: Yes (Congenital Anomaly)
  Sender: FDA-Public Use
  Company Number: A0678478A

PATIENT
  Sex: Female

DRUGS (4)
  1. PAXIL [Suspect]
     Indication: DEPRESSION
     Dosage: 10MG PER DAY
     Dates: start: 19960701, end: 20000101
  2. PRENATAL VITAMINS [Concomitant]
  3. AMOXICILLIN [Concomitant]
  4. TYLENOL [Concomitant]

REACTIONS (10)
  - ASPLENIA [None]
  - ATRIAL SEPTAL DEFECT [None]
  - CONGENITAL GASTRIC ANOMALY [None]
  - DRUG EXPOSURE DURING PREGNANCY [None]
  - FLUID RETENTION [None]
  - HEART DISEASE CONGENITAL [None]
  - OLIGOHYDRAMNIOS [None]
  - PERSISTENT FOETAL CIRCULATION [None]
  - PREMATURE LABOUR [None]
  - PULMONARY MALFORMATION [None]
